FAERS Safety Report 7891861-2 (Version None)
Quarter: 2011Q4

REPORT INFORMATION
  Report Type: 
  Country: None (occurrence: None)
  Receive Date: 20111103
  Receipt Date: 20110810
  Transmission Date: 20120403
  Serious: No
  Sender: FDA-Public Use
  Company Number: US-AMGEN-QUU263346

PATIENT
  Sex: Female

DRUGS (5)
  1. ENBREL [Suspect]
     Indication: PSORIASIS
     Dosage: 50 MG, QWK
     Route: 058
     Dates: start: 20060901, end: 20080125
  2. NIFEDIPINE [Concomitant]
     Dosage: 30 MG, UNK
     Route: 048
     Dates: start: 20061101
  3. UNSPECIFIED MEDICATION [Concomitant]
     Dosage: UNK UNK, UNK
  4. OLMESARTAN MEDOXOMIL [Concomitant]
     Dosage: 40 MG, QD
     Route: 048
     Dates: end: 20061107
  5. SERTRALINE HYDROCHLORIDE [Concomitant]
     Dosage: 10 MG, QD
     Route: 048
     Dates: end: 20070501

REACTIONS (2)
  - VOMITING IN PREGNANCY [None]
  - DRUG INEFFECTIVE [None]
